FAERS Safety Report 8942729 (Version 1)
Quarter: 2012Q4

REPORT INFORMATION
  Report Type: 
  Country: CA (occurrence: CA)
  Receive Date: 20121204
  Receipt Date: 20121204
  Transmission Date: 20130627
  Serious: No
  Sender: FDA-Public Use
  Company Number: CA-TEVA-373674USA

PATIENT
  Sex: Female

DRUGS (1)
  1. PLAN B [Suspect]
     Indication: CONTRACEPTION
     Dosage: 2 tablets
     Route: 048
     Dates: start: 2011

REACTIONS (2)
  - Unintended pregnancy [Recovered/Resolved]
  - Drug ineffective [Recovered/Resolved]
